FAERS Safety Report 11423062 (Version 1)
Quarter: 2015Q3

REPORT INFORMATION
  Report Type: Spontaneous
  Country: PT (occurrence: None)
  Receive Date: 20150826
  Receipt Date: 20150826
  Transmission Date: 20151125
  Serious: Yes (Life-Threatening, Hospitalization, Disabling)
  Sender: FDA-Public Use
  Company Number: None

PATIENT
  Age: 47 Year
  Sex: Male

DRUGS (7)
  1. TERCIAN [Concomitant]
     Active Substance: CYAMEMAZINE
  2. XEPLION [Concomitant]
     Active Substance: PALIPERIDONE PALMITATE
  3. RISPERDAL [Suspect]
     Active Substance: RISPERIDONE
     Indication: SCHIZOPHRENIA
     Dosage: IR DEPENDS ?OTHER?OTHER
     Dates: start: 20020801, end: 20150811
  4. LEDIPASVIR/SOFOSBUVIR [Concomitant]
     Active Substance: LEDIPASVIR\SOFOSBUVIR
  5. HARVONI [Concomitant]
     Active Substance: LEDIPASVIR\SOFOSBUVIR
  6. LORENIN [Concomitant]
     Active Substance: LORAZEPAM
  7. XEPLION XEPLION 100 HANSEN CILAG INTERNATIONAL [Suspect]
     Active Substance: PALIPERIDONE PALMITATE
     Indication: SCHIZOPHRENIA
     Route: 030

REACTIONS (2)
  - Aspiration [None]
  - Pneumonia aspiration [None]

NARRATIVE: CASE EVENT DATE: 20150811
